FAERS Safety Report 10250312 (Version 1)
Quarter: 2014Q2

REPORT INFORMATION
  Report Type: Spontaneous
  Country: US (occurrence: None)
  Receive Date: 20140618
  Receipt Date: 20140618
  Transmission Date: 20141212
  Serious: Yes (Other)
  Sender: FDA-Public Use
  Company Number: None

PATIENT
  Age: 68 Year
  Sex: Male
  Weight: 73.94 kg

DRUGS (1)
  1. OXYCODONE/ACETAMINOPHEN 5/325 [Suspect]
     Indication: PROCEDURAL PAIN
     Dosage: 1, FOUR TIMES DAILY, TAKEN BY MOUTH
     Route: 048
     Dates: start: 20140606, end: 20140606

REACTIONS (1)
  - Tremor [None]
